FAERS Safety Report 5871444-6 (Version None)
Quarter: 2008Q3

REPORT INFORMATION
  Report Type: 
  Country: None (occurrence: None)
  Receive Date: 20080905
  Receipt Date: 20080829
  Transmission Date: 20090109
  Serious: Yes (Hospitalization)
  Sender: FDA-Public Use
  Company Number: PHHY2008JP08616

PATIENT
  Sex: Female

DRUGS (8)
  1. DIOVAN [Suspect]
     Indication: HYPERTENSION
     Dosage: UNK
     Route: 048
     Dates: start: 20080425, end: 20080501
  2. CALBLOCK [Suspect]
     Indication: HYPERTENSION
     Dosage: UNK
     Route: 048
     Dates: start: 20080410, end: 20080425
  3. SEIBULE [Concomitant]
     Indication: DRUG HYPERSENSITIVITY
     Dosage: UNK
     Dates: start: 20080425, end: 20080501
  4. SEIBULE [Concomitant]
     Indication: DIABETES MELLITUS
  5. LOXONIN [Concomitant]
     Indication: PHARYNGITIS
     Dosage: UNK
     Route: 048
     Dates: start: 20080408, end: 20080425
  6. APLACE [Concomitant]
     Indication: GASTRITIS
     Dosage: UNK
     Route: 048
     Dates: start: 20080408, end: 20080425
  7. GENINAX [Concomitant]
     Indication: PHARYNGITIS
     Dosage: UNK
     Route: 048
     Dates: start: 20080408, end: 20080425
  8. ALUSA [Concomitant]

REACTIONS (10)
  - ECZEMA [None]
  - FLUSHING [None]
  - LYMPHOCYTE STIMULATION TEST POSITIVE [None]
  - MONOCYTE PERCENTAGE INCREASED [None]
  - OEDEMA PERIPHERAL [None]
  - PURPURA [None]
  - RASH [None]
  - RASH GENERALISED [None]
  - SKIN EXFOLIATION [None]
  - THIRST [None]
